FAERS Safety Report 13997498 (Version 1)
Quarter: 2017Q3

REPORT INFORMATION
  Report Type: Spontaneous
  Country: US (occurrence: US)
  Receive Date: 20170921
  Receipt Date: 20170921
  Transmission Date: 20171128
  Serious: No
  Sender: FDA-Public Use
  Company Number: US-ALLERGAN-1667975US

PATIENT
  Age: 72 Year
  Sex: Female
  Weight: 71.66 kg

DRUGS (3)
  1. TENORMIN [Concomitant]
     Active Substance: ATENOLOL
     Indication: HYPERTENSION
     Dosage: 50 MG, QD
  2. CARAFATE [Suspect]
     Active Substance: SUCRALFATE
     Indication: GASTROOESOPHAGEAL REFLUX DISEASE
     Dosage: 10 ML, QID
     Route: 048
     Dates: start: 20160825, end: 20160827
  3. CARAFATE [Suspect]
     Active Substance: SUCRALFATE
     Indication: ULCER

REACTIONS (7)
  - Inadequate aseptic technique in use of product [Unknown]
  - Rectal haemorrhage [Recovering/Resolving]
  - Rectal discharge [Recovering/Resolving]
  - Constipation [Unknown]
  - Colitis ulcerative [Recovering/Resolving]
  - Abdominal pain [Recovered/Resolved]
  - Diarrhoea [Recovered/Resolved]

NARRATIVE: CASE EVENT DATE: 20160827
